FAERS Safety Report 17170929 (Version 1)
Quarter: 2019Q4

REPORT INFORMATION
  Report Type: Spontaneous
  Country: JP (occurrence: JP)
  Receive Date: 20191218
  Receipt Date: 20191218
  Transmission Date: 20200122
  Serious: Yes (Death, Life-Threatening, Hospitalization)
  Sender: FDA-Public Use
  Company Number: JP-CELGENEUS-JPN-20191206212

PATIENT
  Age: 65 Year
  Sex: Male

DRUGS (20)
  1. ABRAXANE [Suspect]
     Active Substance: PACLITAXEL
     Dosage: 167 MILLIGRAM
     Route: 041
     Dates: start: 20190613, end: 20190613
  2. ABRAXANE [Suspect]
     Active Substance: PACLITAXEL
     Dosage: 167 MILLIGRAM
     Route: 041
     Dates: start: 20190620, end: 20190620
  3. CARBOPLATIN. [Suspect]
     Active Substance: CARBOPLATIN
     Dosage: 595 MILLIGRAM
     Route: 041
     Dates: start: 20190606, end: 20190606
  4. ABRAXANE [Suspect]
     Active Substance: PACLITAXEL
     Dosage: 167 MILLIGRAM
     Route: 041
     Dates: start: 20190530, end: 20190530
  5. ABRAXANE [Suspect]
     Active Substance: PACLITAXEL
     Dosage: 100 MILLIGRAM
     Route: 041
     Dates: start: 20190725, end: 20190725
  6. ABRAXANE [Suspect]
     Active Substance: PACLITAXEL
     Dosage: 100 MILLIGRAM
     Route: 041
     Dates: start: 20190801, end: 20190801
  7. ABRAXANE [Suspect]
     Active Substance: PACLITAXEL
     Dosage: 167 MILLIGRAM
     Route: 041
     Dates: start: 20190704, end: 20190704
  8. ABRAXANE [Suspect]
     Active Substance: PACLITAXEL
     Dosage: 167 MILLIGRAM
     Route: 041
     Dates: start: 20190711, end: 20190711
  9. CARBOPLATIN. [Suspect]
     Active Substance: CARBOPLATIN
     Indication: NON-SMALL CELL LUNG CANCER
     Dosage: 595 MILLIGRAM
     Route: 041
     Dates: start: 20190516, end: 20190516
  10. ABRAXANE [Suspect]
     Active Substance: PACLITAXEL
     Dosage: 167 MILLIGRAM
     Route: 041
     Dates: start: 20190606, end: 20190606
  11. ABRAXANE [Suspect]
     Active Substance: PACLITAXEL
     Dosage: 167 MILLIGRAM
     Route: 041
     Dates: start: 20190627, end: 20190627
  12. MEDI4736 (DURVALUMAB) [Suspect]
     Active Substance: DURVALUMAB
     Dosage: 1500 MILLIGRAM
     Route: 041
     Dates: start: 20190725, end: 20190725
  13. ABRAXANE [Suspect]
     Active Substance: PACLITAXEL
     Indication: NON-SMALL CELL LUNG CANCER
     Dosage: 167 MILLIGRAM
     Route: 041
     Dates: start: 20190516, end: 20190516
  14. CARBOPLATIN. [Suspect]
     Active Substance: CARBOPLATIN
     Dosage: 595 MILLIGRAM
     Route: 041
     Dates: start: 20190725, end: 20190725
  15. MEDI4736 (DURVALUMAB) [Suspect]
     Active Substance: DURVALUMAB
     Indication: NON-SMALL CELL LUNG CANCER
     Dosage: 1500 MILLIGRAM
     Route: 041
     Dates: start: 20190516, end: 20190516
  16. MEDI4736 (DURVALUMAB) [Suspect]
     Active Substance: DURVALUMAB
     Dosage: 1500 MILLIGRAM
     Route: 041
     Dates: start: 20190627, end: 20190627
  17. ABRAXANE [Suspect]
     Active Substance: PACLITAXEL
     Dosage: 167 MILLIGRAM
     Route: 041
     Dates: start: 20190523, end: 20190523
  18. CARBOPLATIN. [Suspect]
     Active Substance: CARBOPLATIN
     Dosage: 595 MILLIGRAM
     Route: 041
     Dates: start: 20190627, end: 20190627
  19. ABRAXANE [Suspect]
     Active Substance: PACLITAXEL
     Dosage: 100 MILLIGRAM
     Route: 041
     Dates: start: 20190808, end: 20190808
  20. MEDI4736 (DURVALUMAB) [Suspect]
     Active Substance: DURVALUMAB
     Dosage: 1500 MILLIGRAM
     Route: 041
     Dates: start: 20190606, end: 20190606

REACTIONS (1)
  - Meningoencephalitis herpetic [Fatal]

NARRATIVE: CASE EVENT DATE: 20190918
